FAERS Safety Report 17247987 (Version 1)
Quarter: 2020Q1

REPORT INFORMATION
  Report Type: Spontaneous
  Country: US (occurrence: US)
  Receive Date: 20200108
  Receipt Date: 20200108
  Transmission Date: 20200409
  Serious: Yes (Hospitalization, Other)
  Sender: FDA-Public Use
  Company Number: US-AMGEN-USASP2020001119

PATIENT
  Age: 58 Year
  Sex: Male

DRUGS (1)
  1. MVASI [Suspect]
     Active Substance: BEVACIZUMAB-AWWB
     Indication: GLIOBLASTOMA
     Dosage: 10 MILLIGRAM/KILOGRAM
     Route: 065
     Dates: start: 20191218

REACTIONS (2)
  - Seizure [Unknown]
  - Haemorrhage intracranial [Unknown]
